FAERS Safety Report 8315482-2 (Version None)
Quarter: 2012Q2

REPORT INFORMATION
  Report Type: 
  Country: None (occurrence: None)
  Receive Date: 20120426
  Receipt Date: 20120415
  Transmission Date: 20120825
  Serious: Yes (Hospitalization)
  Sender: FDA-Public Use
  Company Number: US-SANOFI-AVENTIS-2012SA025014

PATIENT
  Age: 62 Year
  Sex: Female

DRUGS (10)
  1. ACETAMINOPHEN [Suspect]
     Indication: SUICIDE ATTEMPT
     Route: 048
  2. CLONIDINE [Suspect]
     Dosage: 42 TABLETS OF 0.2 MG EACH
     Route: 048
  3. TAMOXIFEN CITRATE [Concomitant]
  4. FUROSEMIDE [Suspect]
     Indication: SUICIDE ATTEMPT
     Route: 065
  5. CLONIDINE [Suspect]
     Route: 065
  6. CLONIDINE [Suspect]
     Dosage: 42 TABLETS OF 0.2 MG EACH
     Route: 048
  7. FUROSEMIDE [Suspect]
     Route: 065
  8. FUROSEMIDE [Suspect]
     Dosage: 58 TABLETS OF 40 MG EACH
     Route: 048
  9. CLONIDINE [Suspect]
     Indication: SUICIDE ATTEMPT
     Route: 065
  10. FUROSEMIDE [Suspect]
     Dosage: 58 TABLETS OF 40 MG EACH
     Route: 048

REACTIONS (8)
  - SUICIDE ATTEMPT [None]
  - BLOOD CREATINE PHOSPHOKINASE INCREASED [None]
  - AMYLASE INCREASED [None]
  - BLOOD LACTIC ACID INCREASED [None]
  - HYPOTENSION [None]
  - HYPOTHERMIA [None]
  - MULTIPLE DRUG OVERDOSE [None]
  - BRADYCARDIA [None]
